FAERS Safety Report 9255947 (Version 1)
Quarter: 2013Q2

REPORT INFORMATION
  Report Type: Spontaneous
  Country: US (occurrence: US)
  Receive Date: 20130425
  Receipt Date: 20130425
  Transmission Date: 20140414
  Serious: No
  Sender: FDA-Public Use
  Company Number: US-TEVA-399554USA

PATIENT
  Age: 16 Year
  Sex: Female
  Weight: 45.4 kg

DRUGS (1)
  1. PLAN B ONE-STEP [Suspect]
     Indication: POST COITAL CONTRACEPTION
     Dosage: 1.5 MILLIGRAM DAILY;
     Route: 048
     Dates: start: 20130406, end: 20130406

REACTIONS (3)
  - Breast discomfort [Recovered/Resolved]
  - Pelvic pain [Not Recovered/Not Resolved]
  - Breast tenderness [Recovered/Resolved]
